FAERS Safety Report 4854608-X (Version None)
Quarter: 2005Q4

REPORT INFORMATION
  Report Type: 
  Country: None (occurrence: None)
  Receive Date: 20051215
  Receipt Date: 20051005
  Transmission Date: 20060501
  Serious: Yes (Hospitalization)
  Sender: FDA-Public Use
  Company Number: US-MERCK-0510USA04019

PATIENT
  Age: 63 Year
  Sex: Male
  Weight: 91 kg

DRUGS (17)
  1. LANTUS [Concomitant]
     Route: 065
  2. ZOCOR [Concomitant]
     Route: 065
  3. VIOXX [Suspect]
     Indication: ARTHRITIS
     Route: 048
     Dates: start: 20020101, end: 20021101
  4. VIOXX [Suspect]
     Indication: BONE PAIN
     Route: 048
     Dates: start: 20020101, end: 20021101
  5. INDERAL [Concomitant]
     Route: 065
  6. ZESTRIL [Concomitant]
     Route: 065
  7. PLETAL [Concomitant]
     Route: 065
  8. GLUCOPHAGE [Concomitant]
     Route: 065
  9. POTASSIUM CHLORIDE [Concomitant]
     Route: 065
  10. LANOXICAPS [Concomitant]
     Route: 065
  11. LIPITOR [Concomitant]
     Route: 065
  12. LEVOTHYROXINE SODIUM [Concomitant]
     Route: 065
  13. LASIX [Concomitant]
     Route: 065
  14. AVANDIA [Concomitant]
     Route: 065
  15. HYTRIN [Concomitant]
     Route: 065
  16. INSULIN [Concomitant]
     Route: 065
     Dates: start: 19990101
  17. TYLENOL [Concomitant]
     Route: 065

REACTIONS (20)
  - ARRHYTHMIA [None]
  - BRONCHITIS [None]
  - CARDIAC ARREST [None]
  - CARDIOVASCULAR DISORDER [None]
  - CHEST PAIN [None]
  - DENTAL CARIES [None]
  - DEPRESSION [None]
  - DIABETIC FOOT [None]
  - DILATATION ATRIAL [None]
  - GLAUCOMA [None]
  - HAEMORRHOIDS [None]
  - MITRAL VALVE INCOMPETENCE [None]
  - MYOCARDIAL INFARCTION [None]
  - PERIODONTITIS [None]
  - PULMONARY VALVE INCOMPETENCE [None]
  - TACHYCARDIA [None]
  - TIBIA FRACTURE [None]
  - TRICUSPID VALVE INCOMPETENCE [None]
  - UPPER RESPIRATORY TRACT INFECTION [None]
  - VENTRICULAR HYPERTROPHY [None]
